FAERS Safety Report 8905191 (Version 1)
Quarter: 2012Q4

REPORT INFORMATION
  Report Type: 
  Country: CA (occurrence: CA)
  Receive Date: 20121111
  Receipt Date: 20121111
  Transmission Date: 20130627
  Serious: Yes (Other)
  Sender: FDA-Public Use
  Company Number: PHMT2005CA00786

PATIENT
  Sex: Female

DRUGS (9)
  1. SANDOSTATIN LAR [Suspect]
     Indication: CARCINOID SYNDROME
     Dosage: 60 mg, every 4 weeks
     Dates: start: 19990101
  2. AVANDIA [Concomitant]
  3. CALCIUM [Concomitant]
  4. COZAAR [Concomitant]
  5. GLYBURIDE [Concomitant]
  6. HALIBUT-LIVER OIL [Concomitant]
  7. METFORMIN [Concomitant]
  8. MULTI-VIT [Concomitant]
  9. VITAMIN B COMPLEX [Concomitant]

REACTIONS (13)
  - Hypoglycaemia [Unknown]
  - Hyperglycaemia [Unknown]
  - Injection site bruising [Unknown]
  - Injection site swelling [Recovering/Resolving]
  - Injection site erythema [Unknown]
  - Injection site mass [Unknown]
  - Injection site infection [Recovering/Resolving]
  - Injection site discolouration [Unknown]
  - Flushing [Unknown]
  - Injection site reaction [Unknown]
  - Fall [Unknown]
  - Diarrhoea [Unknown]
  - Injection site pain [Unknown]
